FAERS Safety Report 5464753-6 (Version None)
Quarter: 2007Q3

REPORT INFORMATION
  Report Type: 
  Country: None (occurrence: None)
  Receive Date: 20070921
  Receipt Date: 20070911
  Transmission Date: 20080115
  Serious: Yes (Hospitalization, Disabling)
  Sender: FDA-Public Use
  Company Number: BE-PFIZER INC-2007054687

PATIENT
  Sex: Male
  Weight: 74.4 kg

DRUGS (9)
  1. SU-011,248 [Suspect]
     Indication: BREAST CANCER
     Route: 048
     Dates: start: 20070605, end: 20070618
  2. DOCETAXEL [Suspect]
     Indication: BREAST CANCER
     Route: 042
     Dates: start: 20070604, end: 20070604
  3. LOORTAN [Concomitant]
     Route: 048
  4. LIPITOR [Concomitant]
     Route: 048
  5. CARDIOASPIRINE [Concomitant]
     Dates: start: 20070501, end: 20070702
  6. CITALOPRAM HYDROBROMIDE [Concomitant]
     Route: 048
  7. DYTENZIDE [Concomitant]
     Route: 048
  8. MEDROL [Concomitant]
     Route: 048
  9. ACEDICON [Concomitant]

REACTIONS (1)
  - CEREBRAL HAEMORRHAGE [None]
